FAERS Safety Report 9688925 (Version 1)
Quarter: 2013Q4

REPORT INFORMATION
  Report Type: Report from Study
  Country: US (occurrence: US)
  Receive Date: 20131114
  Receipt Date: 20131114
  Transmission Date: 20140711
  Serious: Yes (Other)
  Sender: FDA-Public Use
  Company Number: US-TEVA-443883USA

PATIENT
  Sex: Female

DRUGS (2)
  1. RIBAVIRIN [Suspect]
     Dosage: SUSPECT MEDICATION WAS TAKEN BY THE FATHER
     Route: 065
     Dates: start: 201303
  2. PEGINTERFERON ALFA-2A [Suspect]
     Dates: start: 201303

REACTIONS (1)
  - Abortion spontaneous [Recovered/Resolved]
